FAERS Safety Report 6045838-2 (Version None)
Quarter: 2009Q1

REPORT INFORMATION
  Report Type: 
  Country: None (occurrence: None)
  Receive Date: 20090121
  Receipt Date: 20090116
  Transmission Date: 20090719
  Serious: No
  Sender: FDA-Public Use
  Company Number: US-B.I. PHARMACEUTICALS,INC./RIDGEFIELD-2009-BP-00609BP

PATIENT
  Sex: Male

DRUGS (1)
  1. APTIVUS/RITONAVIR CAPSULES [Suspect]

REACTIONS (1)
  - GASTROINTESTINAL DISORDER [None]
